FAERS Safety Report 24025552 (Version 1)
Quarter: 2024Q2

REPORT INFORMATION
  Report Type: Report from Study
  Country: CN (occurrence: CN)
  Receive Date: 20240628
  Receipt Date: 20240628
  Transmission Date: 20240716
  Serious: No
  Sender: FDA-Public Use
  Company Number: CN-ROCHE-3385941

PATIENT
  Age: 56 Year
  Sex: Male
  Weight: 52.0 kg

DRUGS (1)
  1. ALECENSA [Suspect]
     Active Substance: ALECTINIB HYDROCHLORIDE
     Indication: Lung neoplasm malignant
     Dosage: CAPSULES, 150 MG *224 CAPSULES
     Route: 048
     Dates: start: 20210428

REACTIONS (2)
  - Feeding disorder [Unknown]
  - Weight decreased [Not Recovered/Not Resolved]
